FAERS Safety Report 16770554 (Version 1)
Quarter: 2019Q3

REPORT INFORMATION
  Report Type: Spontaneous
  Country: GB (occurrence: GB)
  Receive Date: 20190904
  Receipt Date: 20190904
  Transmission Date: 20191005
  Serious: Yes (Other)
  Sender: FDA-Public Use
  Company Number: GB-TEVA-2019-GB-1100562

PATIENT
  Age: 76 Year
  Sex: Male
  Weight: 92.07 kg

DRUGS (6)
  1. SIMVASTATIN. [Concomitant]
     Active Substance: SIMVASTATIN
  2. RAMIPRIL. [Concomitant]
     Active Substance: RAMIPRIL
  3. BISOPROLOL [Concomitant]
     Active Substance: BISOPROLOL
  4. BISOPROLOL FUMARATE. [Suspect]
     Active Substance: BISOPROLOL FUMARATE
     Indication: CARDIAC FAILURE
     Route: 048
     Dates: start: 20181007
  5. WARFARIN SODIUM. [Suspect]
     Active Substance: WARFARIN SODIUM
     Indication: CARDIAC FAILURE
     Route: 048
     Dates: start: 20181007
  6. DIGOXIN. [Concomitant]
     Active Substance: DIGOXIN

REACTIONS (2)
  - Faeces discoloured [Not Recovered/Not Resolved]
  - Blood urine present [Not Recovered/Not Resolved]
